FAERS Safety Report 5450056-2 (Version None)
Quarter: 2007Q3

REPORT INFORMATION
  Report Type: 
  Country: None (occurrence: None)
  Receive Date: 20070912
  Receipt Date: 20070911
  Transmission Date: 20080115
  Serious: Yes (Hospitalization)
  Sender: FDA-Public Use
  Company Number: A0680085A

PATIENT
  Sex: Male

DRUGS (1)
  1. GOODYS EXTRA STRENGTH HEADACHE POWDER [Suspect]
     Indication: PAIN
     Route: 048

REACTIONS (4)
  - COLONIC POLYP [None]
  - DEPENDENCE [None]
  - INTENTIONAL DRUG MISUSE [None]
  - RECTAL HAEMORRHAGE [None]
